FAERS Safety Report 4501082-9 (Version None)
Quarter: 2004Q4

REPORT INFORMATION
  Report Type: 
  Country: None (occurrence: None)
  Receive Date: 20041110
  Receipt Date: 20041029
  Transmission Date: 20050328
  Serious: Yes (Other)
  Sender: FDA-Public Use
  Company Number: 2004085172

PATIENT
  Age: 23 Year
  Sex: Male

DRUGS (1)
  1. BENADRYL [Suspect]
     Dosage: TAKEN APPROX. 70 ULTRATABS IN 4 DAYS, ORAL
     Route: 048
     Dates: start: 20041026

REACTIONS (3)
  - DRUG DEPENDENCE [None]
  - INCOHERENT [None]
  - MEMORY IMPAIRMENT [None]
